FAERS Safety Report 22291901 (Version 1)
Quarter: 2023Q2

REPORT INFORMATION
  Report Type: Spontaneous
  Country: SE (occurrence: SE)
  Receive Date: 20230507
  Receipt Date: 20230507
  Transmission Date: 20230722
  Serious: Yes (Other)
  Sender: FDA-Public Use
  Company Number: None

PATIENT
  Age: 58 Year
  Sex: Male

DRUGS (1)
  1. PONVORY [Suspect]
     Active Substance: PONESIMOD
     Indication: Multiple sclerosis
     Route: 048
     Dates: start: 20220916, end: 20230126

REACTIONS (3)
  - Cough [Recovering/Resolving]
  - Lung opacity [Recovering/Resolving]
  - Dyspnoea [Recovering/Resolving]

NARRATIVE: CASE EVENT DATE: 20221231
